FAERS Safety Report 16936464 (Version 1)
Quarter: 2019Q4

REPORT INFORMATION
  Report Type: Spontaneous
  Country: US (occurrence: US)
  Receive Date: 20190828
  Receipt Date: 20190828
  Transmission Date: 20200122
  Serious: Yes (Hospitalization)
  Sender: FDA-Public Use
  Company Number: None

PATIENT
  Age: 74 Year
  Sex: Female
  Weight: 52.62 kg

DRUGS (1)
  1. DUPIXENT [Suspect]
     Active Substance: DUPILUMAB
     Indication: ECZEMA
     Route: 058
     Dates: start: 20180713, end: 20190825

REACTIONS (4)
  - Urticaria [None]
  - Swollen tongue [None]
  - Chest pain [None]
  - Dehydration [None]

NARRATIVE: CASE EVENT DATE: 20190825
